FAERS Safety Report 8899108 (Version 1)
Quarter: 2012Q4

REPORT INFORMATION
  Report Type: 
  Country: DE (occurrence: DE)
  Receive Date: 20121109
  Receipt Date: 20121109
  Transmission Date: 20130627
  Serious: Yes (Life-Threatening, Hospitalization)
  Sender: FDA-Public Use
  Company Number: GXKR2012DE003430

PATIENT

DRUGS (1)
  1. ACETYLSALICYLIC ACID [Suspect]
     Route: 065

REACTIONS (1)
  - Subarachnoid haemorrhage [Not Recovered/Not Resolved]
